FAERS Safety Report 5749571-3 (Version None)
Quarter: 2008Q2

REPORT INFORMATION
  Report Type: 
  Country: None (occurrence: None)
  Receive Date: 20080527
  Receipt Date: 20080523
  Transmission Date: 20081010
  Serious: Yes (Life-Threatening)
  Sender: FDA-Public Use
  Company Number: AU-ASTRAZENECA-2008AP03917

PATIENT

DRUGS (2)
  1. MARCAINE [Suspect]
     Indication: SPINAL ANAESTHESIA
     Dosage: MOTHER RECEIVED 12 MG INTRATHECAL
     Route: 064
  2. FENTANYL [Suspect]
     Indication: GENERAL ANAESTHESIA
     Dosage: MOTHER RECEIVED 20 MG INTRATHECAL
     Route: 064

REACTIONS (1)
  - RESUSCITATION [None]
